FAERS Safety Report 25163745 (Version 1)
Quarter: 2025Q2

REPORT INFORMATION
  Report Type: Spontaneous
  Country: US (occurrence: US)
  Receive Date: 20250405
  Receipt Date: 20250405
  Transmission Date: 20250717
  Serious: No
  Sender: AILEX PHARMACEUTICALS
  Company Number: AP-2025-US-6415

PATIENT
  Age: 39 Year
  Sex: Female

DRUGS (1)
  1. CROMOLYN SODIUM [Suspect]
     Active Substance: CROMOLYN SODIUM
     Indication: Mast cell activation syndrome
     Route: 048
     Dates: start: 20250218

REACTIONS (2)
  - Intentional underdose [Unknown]
  - Hypersensitivity [Unknown]
